FAERS Safety Report 6390927-6 (Version None)
Quarter: 2009Q4

REPORT INFORMATION
  Report Type: 
  Country: None (occurrence: None)
  Receive Date: 20091003
  Receipt Date: 20090922
  Transmission Date: 20100525
  Serious: Yes (Other)
  Sender: FDA-Public Use
  Company Number: A-CH2009-26787

PATIENT
  Age: 30 Year
  Sex: Female

DRUGS (4)
  1. ZAVESCA [Suspect]
     Indication: GAUCHER'S DISEASE
     Dosage: 100 MG, TID, ORAL; ORAL
     Route: 048
     Dates: start: 20090301, end: 20090701
  2. ZAVESCA [Suspect]
     Indication: GAUCHER'S DISEASE
     Dosage: 100 MG, TID, ORAL; ORAL
     Route: 048
     Dates: start: 20090801
  3. FLUOXETINE [Concomitant]
  4. ALENDRONATE SODIUM [Concomitant]

REACTIONS (2)
  - ARTHRALGIA [None]
  - JOINT SWELLING [None]
